FAERS Safety Report 4298498-5 (Version None)
Quarter: 2004Q1

REPORT INFORMATION
  Report Type: 
  Country: None (occurrence: None)
  Receive Date: 20040218
  Receipt Date: 20031117
  Transmission Date: 20041129
  Serious: Yes (Other)
  Sender: FDA-Public Use
  Company Number: US-BRISTOL-MYERS SQUIBB COMPANY-12442992

PATIENT
  Age: 51 Year
  Sex: Female

DRUGS (7)
  1. STADOL [Suspect]
     Indication: PAIN
  2. TALWIN NX [Concomitant]
     Route: 048
  3. FLEXERIL [Concomitant]
     Route: 048
  4. ELAVIL [Concomitant]
     Route: 048
  5. MAXZIDE [Concomitant]
     Route: 048
  6. HYDROCODONE [Concomitant]
  7. PERCOCET [Concomitant]

REACTIONS (1)
  - DEPENDENCE [None]
